FAERS Safety Report 6546846-5 (Version None)
Quarter: 2010Q1

REPORT INFORMATION
  Report Type: 
  Country: None (occurrence: None)
  Receive Date: 20100114
  Receipt Date: 20091013
  Transmission Date: 20100710
  Serious: No
  Sender: FDA-Public Use
  Company Number: 2009BM000259

PATIENT
  Age: 62 Year
  Sex: Female
  Weight: 83.9154 kg

DRUGS (13)
  1. KUVAN [Suspect]
     Indication: PHENYLKETONURIA
     Dosage: 700 MG;QD;PO ; 1400 MG;QD;PO ; 700 MG;QD;PO
     Route: 048
     Dates: start: 20090916, end: 20091001
  2. KUVAN [Suspect]
     Indication: PHENYLKETONURIA
     Dosage: 700 MG;QD;PO ; 1400 MG;QD;PO ; 700 MG;QD;PO
     Route: 048
     Dates: start: 20091002, end: 20091012
  3. KUVAN [Suspect]
     Indication: PHENYLKETONURIA
     Dosage: 700 MG;QD;PO ; 1400 MG;QD;PO ; 700 MG;QD;PO
     Route: 048
     Dates: start: 20091013
  4. ATIVAN [Concomitant]
  5. CENTRUM SILVER /01292501/ [Concomitant]
  6. DOCUSATE [Concomitant]
  7. CALCIUM W/VITAMIN D [Concomitant]
  8. LAXATIVE [Concomitant]
  9. RISPERDAL [Concomitant]
  10. CITALOPRAM HYDROBROMIDE [Concomitant]
  11. ZESTRIL [Concomitant]
  12. SIMVASTATIN [Concomitant]
  13. PHENOL [Concomitant]

REACTIONS (4)
  - AGGRESSION [None]
  - AGITATION [None]
  - ANXIETY [None]
  - COUGH [None]
